FAERS Safety Report 8296602-5 (Version None)
Quarter: 2012Q2

REPORT INFORMATION
  Report Type: 
  Country: None (occurrence: None)
  Receive Date: 20120418
  Receipt Date: 20120418
  Transmission Date: 20120825
  Serious: Yes (Other)
  Sender: FDA-Public Use
  Company Number: None

PATIENT
  Sex: Female
  Weight: 49.895 kg

DRUGS (1)
  1. BONIVA [Suspect]
     Indication: OSTEOPENIA
     Dosage: 1 150MG PILL
     Dates: start: 20110315, end: 20120406

REACTIONS (7)
  - POLYMYALGIA RHEUMATICA [None]
  - BONE PAIN [None]
  - ARTHRALGIA [None]
  - CARPAL TUNNEL SYNDROME [None]
  - MUSCULOSKELETAL PAIN [None]
  - PAIN IN EXTREMITY [None]
  - BLOOD PRESSURE INCREASED [None]
